FAERS Safety Report 9125150 (Version 3)
Quarter: 2013Q4

REPORT INFORMATION
  Report Type: Spontaneous
  Country: IT (occurrence: IT)
  Receive Date: 20130227
  Receipt Date: 20131015
  Transmission Date: 20140711
  Serious: Yes (Other)
  Sender: FDA-Public Use
  Company Number: IT-JNJFOC-20130208403

PATIENT
  Age: 24 Year
  Sex: Female

DRUGS (3)
  1. RISPERDAL [Suspect]
     Indication: SELF INJURIOUS BEHAVIOUR
     Route: 048
     Dates: start: 20130214, end: 20130214
  2. RIVOTRIL [Suspect]
     Indication: SELF INJURIOUS BEHAVIOUR
     Route: 048
     Dates: start: 20130214, end: 20130214
  3. XANAX [Suspect]
     Indication: SELF INJURIOUS BEHAVIOUR
     Route: 065
     Dates: start: 20130214, end: 20130214

REACTIONS (3)
  - Intentional overdose [Unknown]
  - Sopor [Unknown]
  - Drug abuse [Unknown]
